FAERS Safety Report 4845181-0 (Version None)
Quarter: 2005Q4

REPORT INFORMATION
  Report Type: 
  Country: None (occurrence: None)
  Receive Date: 20051205
  Receipt Date: 20051123
  Transmission Date: 20060501
  Serious: Yes (Other)
  Sender: FDA-Public Use
  Company Number: US-BRISTOL-MYERS SQUIBB COMPANY-13193362

PATIENT
  Age: 33 Year
  Sex: Female

DRUGS (5)
  1. DIDANOSINE [Suspect]
  2. ZIDOVUDINE [Suspect]
  3. RITONAVIR [Suspect]
  4. NELFINAVIR [Suspect]
  5. LOPINAVIR [Suspect]

REACTIONS (6)
  - ANAEMIA [None]
  - GENOTYPE DRUG RESISTANCE TEST [None]
  - HYPERAMYLASAEMIA [None]
  - HYPERGLYCAEMIA [None]
  - LEUKOPENIA [None]
  - RENAL IMPAIRMENT [None]
